FAERS Safety Report 4986382-0 (Version None)
Quarter: 2006Q2

REPORT INFORMATION
  Report Type: 
  Country: None (occurrence: None)
  Receive Date: 20060428
  Receipt Date: 20060411
  Transmission Date: 20061013
  Serious: Yes (Hospitalization)
  Sender: FDA-Public Use
  Company Number: KI-GLAXOSMITHKLINE-B0421670A

PATIENT
  Age: 13 Year
  Sex: Female

DRUGS (2)
  1. ALBENDAZOLE [Suspect]
     Route: 048
  2. DIETHYLCARBAMAZINE CITRATE [Suspect]
     Route: 065

REACTIONS (1)
  - CONVULSION [None]
